FAERS Safety Report 8618951-0 (Version None)
Quarter: 2012Q3

REPORT INFORMATION
  Report Type: 
  Country: None (occurrence: None)
  Receive Date: 20120824
  Receipt Date: 20120815
  Transmission Date: 20120928
  Serious: Yes (Other)
  Sender: FDA-Public Use
  Company Number: PHHY2012BR060186

PATIENT
  Age: 75 Year
  Sex: Male

DRUGS (5)
  1. EXELON [Suspect]
     Dosage: 6 MG, BID
  2. EXELON [Suspect]
     Dosage: 0.04 MG/ML, UNK
  3. HORMONES [Concomitant]
     Indication: URINARY TRACT INFECTION
     Dosage: 1 TABLET A DAY
     Route: 048
  4. EXELON [Suspect]
     Indication: DEMENTIA ALZHEIMER'S TYPE
     Dosage: 3 MG, BID
  5. AMLODIPINE [Concomitant]
     Indication: HYPERTENSION
     Dosage: 1 TABLET A DAY
     Route: 048

REACTIONS (9)
  - VOMITING [None]
  - MALAISE [None]
  - ULCER [None]
  - PALLOR [None]
  - APATHY [None]
  - NAUSEA [None]
  - URINARY TRACT INFECTION [None]
  - HAEMOPTYSIS [None]
  - DIZZINESS [None]
